FAERS Safety Report 7704757-3 (Version None)
Quarter: 2011Q3

REPORT INFORMATION
  Report Type: 
  Country: None (occurrence: None)
  Receive Date: 20110823
  Receipt Date: 20110822
  Transmission Date: 20111222
  Serious: Yes (Death, Other)
  Sender: FDA-Public Use
  Company Number: JP-B.I. PHARMACEUTICALS,INC./RIDGEFIELD-2011-BP-15315NB

PATIENT
  Sex: Female
  Weight: 34 kg

DRUGS (12)
  1. MAGNESIUM SULFATE [Concomitant]
     Dosage: 1320 MG
     Route: 065
  2. KREMEZIN [Concomitant]
     Indication: RENAL FAILURE CHRONIC
     Dosage: 4 G
     Route: 065
  3. CELECOXIB [Concomitant]
     Dosage: 200 MG
     Route: 065
  4. RABEPRAZOLE SODIUM [Concomitant]
     Dosage: 10 MG
     Route: 065
  5. DEPAS [Concomitant]
     Dosage: 0.5 MG
     Route: 065
  6. NORVASC [Concomitant]
     Dosage: 5 MG
     Route: 065
  7. LASIX [Concomitant]
     Dosage: 40 MG
     Route: 065
  8. LAC-B [Concomitant]
     Dosage: 3 G
     Route: 065
  9. MUCOSTA [Concomitant]
     Dosage: 300 MG
     Route: 065
  10. ACTONEL [Concomitant]
     Dosage: 17.5 MG
     Route: 065
  11. PATANOL [Concomitant]
     Dosage: 5 ML
     Route: 065
  12. PRADAXA [Suspect]
     Indication: ATRIAL FIBRILLATION
     Dosage: 220 MG
     Route: 048
     Dates: end: 20110602

REACTIONS (8)
  - PROTHROMBIN TIME PROLONGED [None]
  - GASTROINTESTINAL HAEMORRHAGE [None]
  - LARGE INTESTINAL OBSTRUCTION [None]
  - CARDIAC ARREST [None]
  - SHOCK [None]
  - HAEMORRHAGIC DIATHESIS [None]
  - INTERNATIONAL NORMALISED RATIO INCREASED [None]
  - RESPIRATORY ARREST [None]
